FAERS Safety Report 23977926 (Version 1)
Quarter: 2024Q2

REPORT INFORMATION
  Report Type: Spontaneous
  Country: US (occurrence: US)
  Receive Date: 20240614
  Receipt Date: 20240614
  Transmission Date: 20240716
  Serious: No
  Sender: FDA-Public Use
  Company Number: US-ENDO PHARMACEUTICALS INC-2024-001854

PATIENT
  Age: 10 Year
  Sex: Female

DRUGS (3)
  1. SUPPRELIN LA [Suspect]
     Active Substance: HISTRELIN ACETATE
     Indication: Cytogenetic abnormality
     Dosage: 50 MILLIGRAM, UNKNOWN (1 IMPLANT INSERTED)
     Route: 058
     Dates: start: 20230824
  2. SUPPRELIN LA [Suspect]
     Active Substance: HISTRELIN ACETATE
     Indication: Cytogenetic abnormality
     Dosage: 50 MILLIGRAM, UNKNOWN (1 IMPLANT INSERTED)
     Route: 058
     Dates: start: 20230824
  3. SUPPRELIN LA [Suspect]
     Active Substance: HISTRELIN ACETATE
     Indication: Cytogenetic abnormality
     Dosage: 50 MILLIGRAM, UNKNOWN (1 IMPLANT INSERTED)
     Route: 058
     Dates: start: 20230824

REACTIONS (3)
  - Pain [Not Recovered/Not Resolved]
  - Instillation site discomfort [Not Recovered/Not Resolved]
  - Off label use [Recovered/Resolved]

NARRATIVE: CASE EVENT DATE: 20230824
